FAERS Safety Report 14354543 (Version 4)
Quarter: 2018Q1

REPORT INFORMATION
  Report Type: Report from Study
  Country: DE (occurrence: DE)
  Receive Date: 20180105
  Receipt Date: 20180130
  Transmission Date: 20180509
  Serious: Yes (Death, Other)
  Sender: FDA-Public Use
  Company Number: PHHY2018DE000654

PATIENT
  Sex: Female

DRUGS (3)
  1. BISOPROLOL [Concomitant]
     Active Substance: BISOPROLOL
     Indication: PRODUCT USED FOR UNKNOWN INDICATION
     Dosage: 5 MG, QD (1-0-0)
     Route: 065
     Dates: start: 20130101
  2. IRBESARTAN/HCT [Concomitant]
     Indication: PRODUCT USED FOR UNKNOWN INDICATION
     Dosage: 1 DF, QD (300 /12.5)
     Route: 065
     Dates: start: 20130101
  3. VOTRIENT [Suspect]
     Active Substance: PAZOPANIB HYDROCHLORIDE
     Indication: RENAL CELL CARCINOMA
     Dosage: 800 MG, UNK
     Route: 048
     Dates: start: 20170303, end: 20171004

REACTIONS (4)
  - Polyneuropathy [Recovered/Resolved]
  - Malignant neoplasm progression [Fatal]
  - Dysgeusia [Recovered/Resolved]
  - Renal cell carcinoma [Fatal]

NARRATIVE: CASE EVENT DATE: 20170427
